FAERS Safety Report 5492168-3 (Version None)
Quarter: 2007Q4

REPORT INFORMATION
  Report Type: 
  Country: None (occurrence: None)
  Receive Date: 20071015
  Receipt Date: 20070627
  Transmission Date: 20080405
  Serious: No
  Sender: FDA-Public Use
  Company Number: 2007SP002381

PATIENT
  Age: 67 Year
  Sex: Female
  Weight: 64.4108 kg

DRUGS (9)
  1. LUNESTA [Suspect]
     Indication: INSOMNIA
     Dosage: 2 MG;HS;ORAL
     Route: 048
     Dates: start: 20070521
  2. RELAFEN [Concomitant]
  3. ZETIA [Concomitant]
  4. ATENOLOL [Concomitant]
  5. VITAMIN CAP [Concomitant]
  6. MAGNESIUM SULFATE [Concomitant]
  7. OEMGA-3 [Concomitant]
  8. MELATONIN [Concomitant]
  9. ZOLPIDEM TARTRATE [Concomitant]

REACTIONS (1)
  - INITIAL INSOMNIA [None]
